FAERS Safety Report 7588943-1 (Version None)
Quarter: 2011Q3

REPORT INFORMATION
  Report Type: 
  Country: None (occurrence: None)
  Receive Date: 20110705
  Receipt Date: 20110614
  Transmission Date: 20111222
  Serious: Yes (Hospitalization, Other)
  Sender: FDA-Public Use
  Company Number: US-BAYER-2011-018644

PATIENT
  Age: 32 Year
  Sex: Female
  Weight: 74.83 kg

DRUGS (5)
  1. YAZ [Suspect]
     Indication: ACNE
     Dosage: 1 TAB/DAY
     Dates: start: 20071102, end: 20091201
  2. DILAUDID [Concomitant]
  3. PEPCID [Concomitant]
  4. ZOFRAN [Concomitant]
  5. YAZ [Suspect]
     Indication: PREMENSTRUAL SYNDROME

REACTIONS (5)
  - ABDOMINAL PAIN [None]
  - CHOLECYSTITIS CHRONIC [None]
  - CHOLECYSTECTOMY [None]
  - PYREXIA [None]
  - PAIN [None]
